FAERS Safety Report 18532037 (Version 1)
Quarter: 2020Q4

REPORT INFORMATION
  Report Type: Spontaneous
  Country: DE (occurrence: DE)
  Receive Date: 20201123
  Receipt Date: 20201123
  Transmission Date: 20210114
  Serious: Yes (Hospitalization, Other)
  Sender: FDA-Public Use
  Company Number: DE-SA-2020SA319550

PATIENT

DRUGS (8)
  1. LEMTRADA [Suspect]
     Active Substance: ALEMTUZUMAB
     Indication: RELAPSING MULTIPLE SCLEROSIS
     Dosage: UNK
     Route: 041
     Dates: start: 201809
  2. BACLOFEN. [Concomitant]
     Active Substance: BACLOFEN
     Dosage: 10 MG, TID
     Dates: start: 201809
  3. DEKRISTOL [Concomitant]
     Active Substance: CHOLECALCIFEROL
     Dosage: 2000 IU, QOW
     Dates: start: 201809
  4. L-THYROXINE [LEVOTHYROXINE] [Concomitant]
     Active Substance: LEVOTHYROXINE
     Dosage: 75 UG, QD
     Dates: start: 201809
  5. LEMTRADA [Suspect]
     Active Substance: ALEMTUZUMAB
     Dosage: UNK
     Route: 041
     Dates: start: 201709
  6. ACICLOVIR [Concomitant]
     Active Substance: ACYCLOVIR
     Dosage: 200 MG, BID
     Dates: start: 201809, end: 20181021
  7. PANTOPRAZOLE [Suspect]
     Active Substance: PANTOPRAZOLE
     Dosage: 40 MG, QD
     Dates: start: 201809
  8. SPASMOLYT [Concomitant]
     Active Substance: TROSPIUM CHLORIDE
     Dosage: 20 MG, BID
     Dates: start: 201809

REACTIONS (5)
  - Pyrexia [Recovering/Resolving]
  - Listeriosis [Recovering/Resolving]
  - Loss of consciousness [Recovered/Resolved]
  - Unresponsive to stimuli [Recovered/Resolved]
  - Circulatory collapse [Recovering/Resolving]

NARRATIVE: CASE EVENT DATE: 201809
